FAERS Safety Report 14181308 (Version 4)
Quarter: 2017Q4

REPORT INFORMATION
  Report Type: Report from Study
  Country: None (occurrence: GB)
  Receive Date: 20171112
  Receipt Date: 20171130
  Transmission Date: 20180321
  Serious: Yes (Hospitalization)
  Sender: FDA-Public Use
  Company Number: GB-ABBVIE-17P-167-2157458-00

PATIENT
  Age: 77 Year
  Sex: Male
  Weight: 61 kg

DRUGS (15)
  1. SINEMET CR [Concomitant]
     Active Substance: CARBIDOPA\LEVODOPA
     Indication: PARKINSON^S DISEASE
     Dosage: DOSE: 25/100 MG
     Route: 048
     Dates: start: 20170120
  2. LANSOPRAZOLE. [Concomitant]
     Active Substance: LANSOPRAZOLE
     Indication: PROPHYLAXIS AGAINST GASTROINTESTINAL ULCER
     Route: 048
     Dates: start: 2003
  3. QUININE SULPHATE [Concomitant]
     Active Substance: QUININE SULFATE
     Indication: PARKINSON^S DISEASE
     Route: 048
     Dates: start: 2005
  4. AMOXICILLIN. [Concomitant]
     Active Substance: AMOXICILLIN
     Indication: LOWER RESPIRATORY TRACT INFECTION
     Route: 048
     Dates: start: 20170804, end: 20170811
  5. DUODOPA [Suspect]
     Active Substance: CARBIDOPA\LEVODOPA
     Indication: PARKINSON^S DISEASE
     Route: 050
     Dates: start: 20170124
  6. RASAGILINE. [Concomitant]
     Active Substance: RASAGILINE
     Indication: PARKINSON^S DISEASE
     Route: 048
     Dates: start: 2010
  7. FERROUS SULFATE. [Concomitant]
     Active Substance: FERROUS SULFATE
     Indication: IRON DEFICIENCY
     Route: 048
     Dates: start: 201703
  8. SENNA [Concomitant]
     Active Substance: SENNA LEAF\SENNOSIDES\SENNOSIDES A AND B
     Indication: CONSTIPATION
     Route: 048
     Dates: start: 2010
  9. ASPIRIN. [Concomitant]
     Active Substance: ASPIRIN
     Indication: TRANSIENT ISCHAEMIC ATTACK
     Route: 048
     Dates: start: 2003
  10. FULTIUM D3 [Concomitant]
     Active Substance: CHOLECALCIFEROL
     Indication: VITAMIN D DEFICIENCY
     Route: 048
     Dates: start: 201703
  11. LAXIDO [Concomitant]
     Active Substance: POLYETHYLENE GLYCOL 3350\POTASSIUM CHLORIDE\SODIUM BICARBONATE\SODIUM CHLORIDE
     Indication: CONSTIPATION
     Route: 048
     Dates: start: 2014
  12. FINASTERIDE. [Concomitant]
     Active Substance: FINASTERIDE
     Indication: BENIGN PROSTATIC HYPERPLASIA
     Route: 048
     Dates: start: 2017
  13. AMANTADINE. [Concomitant]
     Active Substance: AMANTADINE HYDROCHLORIDE
     Indication: PARKINSON^S DISEASE
     Route: 048
     Dates: start: 20170124, end: 201708
  14. ROPINIROLE XL [Concomitant]
     Active Substance: ROPINIROLE
     Indication: PARKINSON^S DISEASE
     Route: 048
     Dates: start: 2010, end: 201709
  15. PARACETAMOL [Concomitant]
     Active Substance: ACETAMINOPHEN
     Indication: PAIN
     Route: 048
     Dates: start: 201703

REACTIONS (1)
  - Cardiac failure [Not Recovered/Not Resolved]

NARRATIVE: CASE EVENT DATE: 20170327
